FAERS Safety Report 7209354-4 (Version None)
Quarter: 2011Q1

REPORT INFORMATION
  Report Type: 
  Country: None (occurrence: None)
  Receive Date: 20110104
  Receipt Date: 20101221
  Transmission Date: 20110831
  Serious: Yes (Death)
  Sender: FDA-Public Use
  Company Number: US-CELGENEUS-163-21880-10011311

PATIENT
  Sex: Male

DRUGS (3)
  1. REVLIMID [Suspect]
     Route: 048
     Dates: start: 20071201
  2. REVLIMID [Suspect]
     Route: 048
     Dates: start: 20091201
  3. REVLIMID [Suspect]
     Route: 048
     Dates: start: 20080301

REACTIONS (5)
  - CHRONIC OBSTRUCTIVE PULMONARY DISEASE [None]
  - CARDIAC FAILURE CONGESTIVE [None]
  - PERFORMANCE STATUS DECREASED [None]
  - PERIPHERAL ARTERIAL OCCLUSIVE DISEASE [None]
  - NEPHROPATHY [None]
